FAERS Safety Report 13688280 (Version 1)
Quarter: 2017Q2

REPORT INFORMATION
  Report Type: Spontaneous
  Country: US (occurrence: US)
  Receive Date: 20170626
  Receipt Date: 20170626
  Transmission Date: 20170830
  Serious: No
  Sender: FDA-Public Use
  Company Number: US-RECORDATI RARE DISEASES-US-R13005-17-00067

PATIENT
  Sex: Male

DRUGS (2)
  1. PEGANONE [Suspect]
     Active Substance: ETHOTOIN
     Indication: SEIZURE
     Route: 065
  2. PEGANONE [Suspect]
     Active Substance: ETHOTOIN
     Route: 050
     Dates: start: 201701

REACTIONS (4)
  - No adverse event [Unknown]
  - Overdose [Unknown]
  - Device occlusion [Unknown]
  - Incorrect route of drug administration [Unknown]
